FAERS Safety Report 14718571 (Version 2)
Quarter: 2018Q2

REPORT INFORMATION
  Report Type: Spontaneous
  Country: US (occurrence: US)
  Receive Date: 20180404
  Receipt Date: 20180405
  Transmission Date: 20180711
  Serious: Yes (Hospitalization)
  Sender: FDA-Public Use
  Company Number: US-BIOGEN-2010BI010389

PATIENT
  Age: 44 Year
  Sex: Female
  Weight: 131.66 kg

DRUGS (2)
  1. TYSABRI [Suspect]
     Active Substance: NATALIZUMAB
     Indication: MULTIPLE SCLEROSIS
     Route: 042
     Dates: start: 200912, end: 20100109
  2. TYSABRI [Suspect]
     Active Substance: NATALIZUMAB
     Route: 065
     Dates: start: 2014

REACTIONS (3)
  - Gun shot wound [Recovered/Resolved]
  - Depression [Recovered/Resolved]
  - Suicide attempt [Recovered/Resolved]

NARRATIVE: CASE EVENT DATE: 201001
